FAERS Safety Report 22957700 (Version 14)
Quarter: 2024Q4

REPORT INFORMATION
  Report Type: Report from Study
  Country: DE (occurrence: DE)
  Receive Date: 20230919
  Receipt Date: 20241106
  Transmission Date: 20250114
  Serious: Yes (Hospitalization, Other)
  Sender: JOHNSON AND JOHNSON
  Company Number: DE-KRKA-DE2023K07524STU

PATIENT
  Age: 76 Year
  Sex: Male
  Weight: 73 kg

DRUGS (32)
  1. DARATUMUMAB [Suspect]
     Active Substance: DARATUMUMAB
     Indication: Plasma cell myeloma
     Dosage: 1800 MG (DAY 1, 8, 15, 22)
     Route: 065
  2. DARATUMUMAB [Suspect]
     Active Substance: DARATUMUMAB
     Dosage: 1800 MG PER DAY ON DAY 1 OF A 28 DAY LONG CYCLE
     Route: 058
     Dates: start: 20230330
  3. DARATUMUMAB [Suspect]
     Active Substance: DARATUMUMAB
     Dosage: 1800 MG PER DAY ON DAY 1 OF A 28 DAY LONG CYCLE
     Route: 065
     Dates: start: 20231025
  4. DARATUMUMAB [Suspect]
     Active Substance: DARATUMUMAB
     Dosage: 1822 MG PER DAY ON DAY 1 OF A 28 DAY LONG CYCLE
     Route: 058
     Dates: start: 20230523
  5. TORSEMIDE [Suspect]
     Active Substance: TORSEMIDE
     Indication: Product used for unknown indication
     Route: 065
  6. LENALIDOMIDE [Suspect]
     Active Substance: LENALIDOMIDE
     Indication: Plasma cell myeloma
     Dosage: 20 MG, PER DAY ON CYCLE DAYS 1-21 OF A 28 DAYS LONG CYCLE
     Route: 048
     Dates: start: 20230330, end: 202305
  7. LENALIDOMIDE [Suspect]
     Active Substance: LENALIDOMIDE
     Dosage: 15 MG PER DAY ON CYCLE DAYS 1-21 OF A 28 DAYS LONG CYCLE
     Route: 048
     Dates: start: 202305, end: 20230509
  8. LENALIDOMIDE [Suspect]
     Active Substance: LENALIDOMIDE
     Dosage: 15 MG PER DAY ON CYCLE DAYS 1-21 OF A 28 DAYS LONG CYCLE
     Route: 048
     Dates: start: 20230717, end: 20240116
  9. LENALIDOMIDE [Suspect]
     Active Substance: LENALIDOMIDE
     Dosage: 10 MG PER DAY ON CYCLE DAYS 1-21 OF A 28 DAYS LONG CYCLE
     Route: 048
     Dates: start: 20240117, end: 20240403
  10. LENALIDOMIDE [Suspect]
     Active Substance: LENALIDOMIDE
     Dosage: 10 MG PER DAY ON CYCLE DAYS 1-21 OF A 28 DAYS LONG CYCLE
     Route: 048
     Dates: start: 20240507
  11. DEXAMETHASONE [Suspect]
     Active Substance: DEXAMETHASONE
     Indication: Plasma cell myeloma
     Dosage: 20 MG, PER DAY ON CYCLE DAYS 1, 2, 8, 9, 15, 16, 22, 23 OF A 21 DAYS LONG CYCLE
     Route: 048
     Dates: start: 20230330, end: 20230726
  12. DEXAMETHASONE [Suspect]
     Active Substance: DEXAMETHASONE
     Dosage: 20 MG PER DAY ON CYCLE DAYS 1, 2, 8, 15, 16, 22 OF A 21 DAYS LONG CYCLE
     Route: 048
  13. DEXAMETHASONE [Suspect]
     Active Substance: DEXAMETHASONE
     Dosage: 20 MG PER DAY ON CYCLE DAYS 1, 2, 8, 15, 16, 22 OF A 21 DAYS LONG CYCLE
     Route: 048
     Dates: start: 20231025
  14. DEXAMETHASONE [Suspect]
     Active Substance: DEXAMETHASONE
     Dosage: 20 MG PER DAY ON CYCLE DAYS 1, 2, 8, 15, 16, 22 OF A 21 DAYS LONG CYCLE
     Route: 048
     Dates: end: 20231018
  15. ACETAMINOPHEN [Concomitant]
     Active Substance: ACETAMINOPHEN
     Dosage: 500 MG
     Route: 065
  16. ALDACTONE [Concomitant]
     Active Substance: SPIRONOLACTONE
     Dosage: 25 MG, 1X PER DAY 1-0-0
     Route: 048
     Dates: start: 20230623
  17. CALCIUM CARBONATE\CHOLECALCIFEROL [Concomitant]
     Active Substance: CALCIUM CARBONATE\CHOLECALCIFEROL
     Route: 065
  18. ENOXAPARIN SODIUM [Concomitant]
     Active Substance: ENOXAPARIN SODIUM
     Dosage: 1 DOSAGE FORM, 2X PER DAY 1-0-1
     Route: 058
     Dates: start: 20230623
  19. METOPROLOL TARTRATE [Concomitant]
     Active Substance: METOPROLOL TARTRATE
     Dosage: 50 MG, 2X PER DAY 1.5-0-1.5
     Route: 048
     Dates: start: 20230622
  20. MOVICOL [Concomitant]
     Active Substance: POLYETHYLENE GLYCOL 3350\POTASSIUM CHLORIDE\SODIUM BICARBONATE\SODIUM CHLORIDE
     Dosage: 1 DOSAGE FORM, 2X PER DAY 1-0-1
     Route: 048
     Dates: start: 20230623
  21. MONTELUKAST [Concomitant]
     Active Substance: MONTELUKAST
     Route: 065
  22. CARBOHYDRATES\FATTY ACIDS\MINERALS\PROTEIN\VITAMINS [Concomitant]
     Active Substance: CARBOHYDRATES\FATTY ACIDS\MINERALS\PROTEIN\VITAMINS
     Dosage: 1 DOSAGE FORM, 2X PER DAY 1-1-0
     Route: 048
     Dates: start: 20230622
  23. PANTOPRAZOLE SODIUM [Concomitant]
     Active Substance: PANTOPRAZOLE SODIUM
     Dosage: 40 MG, 1X PER DAY 1-0-0
     Route: 048
     Dates: start: 20230622
  24. DIMETHINDENE [Concomitant]
     Active Substance: DIMETHINDENE
     Dosage: 1 MG
     Route: 065
  25. ACYCLOVIR [Concomitant]
     Active Substance: ACYCLOVIR
     Dosage: 400 MG, 2X PER DAY  1-0-1
     Route: 048
     Dates: start: 20230622
  26. CANDESARTAN CILEXETIL [Concomitant]
     Active Substance: CANDESARTAN CILEXETIL
     Dosage: 16 MG, 1X PER DAY 1-0-0
     Route: 048
     Dates: start: 20230622
  27. ELIQUIS [Concomitant]
     Active Substance: APIXABAN
     Dosage: 5 MG
     Route: 065
  28. DIGOXIN [Concomitant]
     Active Substance: DIGOXIN
     Dosage: 0.25 MG, 1X PER DAY
     Route: 048
     Dates: start: 20230622
  29. CALCIFORT [CALCIUM CARBONATE;CALCIUM LACTATE GLUCONATE] [Concomitant]
     Dosage: 500 MG, 2X PER DAY 1-0-1
     Route: 048
     Dates: start: 20230622
  30. TORSEMIDE [Concomitant]
     Active Substance: TORSEMIDE
     Dosage: 10 MG, 2X PER DAY 1-1-0
     Route: 048
     Dates: start: 20230627
  31. COTRIM [Concomitant]
     Active Substance: SULFAMETHOXAZOLE\TRIMETHOPRIM
     Dosage: 960 MG
     Route: 065
  32. LERCANIDIPINE [Concomitant]
     Active Substance: LERCANIDIPINE
     Dosage: 10 MG
     Route: 065

REACTIONS (16)
  - Neutropenia [Recovering/Resolving]
  - Fatigue [Recovered/Resolved]
  - Malaise [Recovered/Resolved]
  - Renal oncocytoma [Recovered/Resolved]
  - Haemoglobin decreased [Recovered/Resolved]
  - Febrile neutropenia [Unknown]
  - Cardiac failure acute [Recovered/Resolved]
  - Leukopenia [Unknown]
  - Calculus bladder [Recovered/Resolved]
  - White blood cell count decreased [Recovering/Resolving]
  - Vertigo [Recovering/Resolving]
  - Dyspnoea [Recovered/Resolved]
  - Rash [Recovering/Resolving]
  - Pneumonia [Recovered/Resolved]
  - Condition aggravated [Recovered/Resolved]
  - Parainfluenzae virus infection [Recovered/Resolved]

NARRATIVE: CASE EVENT DATE: 20230501
